FAERS Safety Report 9770708 (Version 1)
Quarter: 2013Q4

REPORT INFORMATION
  Report Type: Spontaneous
  Country: US (occurrence: US)
  Receive Date: 20131218
  Receipt Date: 20131218
  Transmission Date: 20140711
  Serious: No
  Sender: FDA-Public Use
  Company Number: US-PFIZER INC-2013361843

PATIENT
  Age: 51 Year
  Sex: Male
  Weight: 104.31 kg

DRUGS (9)
  1. LYRICA [Suspect]
     Dosage: 50 MG, 2X/DAY
     Route: 048
     Dates: start: 2013
  2. LYRICA [Suspect]
     Dosage: 50 MG, ONE CAPSULE IN A.M AND TWO CAPSULES IN P.M
     Dates: end: 201312
  3. BABY ASPIRIN [Suspect]
     Dosage: 81 MG, UNK
     Dates: end: 2013
  4. PLAVIX [Concomitant]
     Indication: ARTERIAL SPASM
     Dosage: DAILY
     Dates: start: 201304
  5. BENICAR [Concomitant]
     Indication: HYPERTENSION
     Dosage: DAILY
  6. METFORMIN [Concomitant]
     Indication: DIABETES MELLITUS
     Dosage: 500 MG, 2X/DAY
  7. ATORVASTATIN [Concomitant]
     Indication: BLOOD CHOLESTEROL INCREASED
     Dosage: DAILY
  8. CENTRUM SILVER [Concomitant]
     Indication: VITAMIN SUPPLEMENTATION
     Dosage: UNK
  9. VITAMIN D [Concomitant]
     Indication: VITAMIN SUPPLEMENTATION
     Dosage: 1000 IU, DAILY

REACTIONS (2)
  - Drug ineffective [Unknown]
  - Abdominal discomfort [Unknown]
